FAERS Safety Report 7276357-3 (Version None)
Quarter: 2011Q1

REPORT INFORMATION
  Report Type: 
  Country: None (occurrence: None)
  Receive Date: 20110204
  Receipt Date: 20110127
  Transmission Date: 20110831
  Serious: Yes (Hospitalization)
  Sender: FDA-Public Use
  Company Number: FR-US-EMD SERONO, INC.-7038746

PATIENT
  Age: 23 Year
  Sex: Female
  Weight: 45 kg

DRUGS (4)
  1. MENOPUR [Suspect]
     Route: 058
     Dates: start: 20110119, end: 20110121
  2. OVITRELLE [Suspect]
     Indication: OVARIAN HYPERSTIMULATION SYNDROME
     Route: 058
     Dates: start: 20110123
  3. CETROTIDE [Suspect]
     Indication: OVARIAN HYPERSTIMULATION SYNDROME
     Route: 058
     Dates: start: 20110119, end: 20110121
  4. MENOPUR [Suspect]
     Indication: OVARIAN HYPERSTIMULATION SYNDROME
     Route: 058
     Dates: start: 20110115, end: 20110119

REACTIONS (4)
  - OVARIAN HYPERSTIMULATION SYNDROME [None]
  - URINARY TRACT INFECTION [None]
  - OVARIAN FAILURE [None]
  - ABDOMINAL PAIN [None]
